FAERS Safety Report 6607472-2 (Version None)
Quarter: 2010Q1

REPORT INFORMATION
  Report Type: 
  Country: None (occurrence: None)
  Receive Date: 20100301
  Receipt Date: 20100222
  Transmission Date: 20100710
  Serious: Yes (Death, Life-Threatening, Hospitalization)
  Sender: FDA-Public Use
  Company Number: DE-CELGENEUS-062-21880-09100006

PATIENT
  Age: 72 Year
  Sex: Male
  Weight: 79 kg

DRUGS (4)
  1. REVLIMID [Suspect]
     Indication: PLASMACYTOMA
     Route: 048
     Dates: start: 20081101, end: 20090510
  2. REVLIMID [Suspect]
     Indication: MULTIPLE MYELOMA
  3. RIBOMUSTIN [Concomitant]
     Indication: PLASMACYTOMA
     Route: 065
     Dates: start: 20090529, end: 20090602
  4. DEXAMETHASONE [Concomitant]
     Indication: PLASMACYTOMA
     Route: 065
     Dates: start: 20090529, end: 20090602

REACTIONS (3)
  - CARDIAC FAILURE [None]
  - MULTIPLE MYELOMA [None]
  - RESPIRATORY FAILURE [None]
